FAERS Safety Report 4785401-4 (Version None)
Quarter: 2005Q3

REPORT INFORMATION
  Report Type: 
  Country: None (occurrence: None)
  Receive Date: 20050929
  Receipt Date: 20050909
  Transmission Date: 20060218
  Serious: Yes (Other)
  Sender: FDA-Public Use
  Company Number: MAG-2005-0000392

PATIENT
  Age: 28 Year

DRUGS (1)
  1. THEOPHYLLINE [Suspect]
     Dosage: 84 TABLET, SINGLE, ORAL
     Route: 048

REACTIONS (4)
  - EXCITABILITY [None]
  - HYPOTENSION [None]
  - POLYURIA [None]
  - SHOCK [None]
